FAERS Safety Report 12099694 (Version 1)
Quarter: 2016Q1

REPORT INFORMATION
  Report Type: Spontaneous
  Country: GB (occurrence: GB)
  Receive Date: 20160222
  Receipt Date: 20160222
  Transmission Date: 20160526
  Serious: Yes (Life-Threatening, Disabling, Other)
  Sender: FDA-Public Use
  Company Number: GB-009507513-1602GBR009707

PATIENT
  Age: 39 Year
  Sex: Female
  Weight: 70 kg

DRUGS (3)
  1. NEXPLANON [Suspect]
     Active Substance: ETONOGESTREL
     Indication: CONTRACEPTION
     Route: 058
     Dates: start: 20130912, end: 20140711
  2. DEPO-PROVERA [Concomitant]
     Active Substance: MEDROXYPROGESTERONE ACETATE
  3. VENLAFAXINE HYDROCHLORIDE. [Concomitant]
     Active Substance: VENLAFAXINE HYDROCHLORIDE

REACTIONS (3)
  - Muscular weakness [Unknown]
  - Acute myocardial infarction [Recovered/Resolved with Sequelae]
  - Myalgia [Unknown]

NARRATIVE: CASE EVENT DATE: 20131123
